FAERS Safety Report 4639014-5 (Version None)
Quarter: 2005Q2

REPORT INFORMATION
  Report Type: 
  Country: None (occurrence: None)
  Receive Date: 20050419
  Receipt Date: 20050413
  Transmission Date: 20051028
  Serious: Yes (Other)
  Sender: FDA-Public Use
  Company Number: US-MERCK-0504USA02065

PATIENT
  Age: 72 Year
  Sex: Male
  Weight: 123 kg

DRUGS (12)
  1. VIOXX [Suspect]
     Indication: ARTHRITIS
     Route: 048
  2. POTASSIUM CHLORIDE [Concomitant]
     Route: 065
  3. PLAVIX [Concomitant]
     Route: 065
  4. LASIX [Concomitant]
     Route: 065
  5. ACIPHEX [Concomitant]
     Route: 065
  6. TOPROL-XL [Concomitant]
     Route: 048
  7. ALLOPURINOL [Concomitant]
     Route: 065
  8. ISOSORBIDE MONONITRATE [Concomitant]
     Route: 065
  9. ZOCOR [Concomitant]
     Route: 048
  10. COZAAR [Concomitant]
     Route: 048
  11. NIFEDIPINE [Concomitant]
     Route: 065
  12. HYDRALAZINE [Concomitant]
     Route: 065

REACTIONS (8)
  - CARDIAC DISORDER [None]
  - CHEST PAIN [None]
  - DYSPNOEA [None]
  - EMOTIONAL DISTRESS [None]
  - HYPERTENSION [None]
  - MYOCARDIAL INFARCTION [None]
  - OEDEMA PERIPHERAL [None]
  - SLEEP APNOEA SYNDROME [None]
